FAERS Safety Report 9059534 (Version 4)
Quarter: 2014Q1

REPORT INFORMATION
  Report Type: Report from Study
  Country: FI (occurrence: FI)
  Receive Date: 20130212
  Receipt Date: 20140228
  Transmission Date: 20141002
  Serious: Yes (Hospitalization, Other)
  Sender: FDA-Public Use
  Company Number: FI-BIOGENIDEC-2013BI012427

PATIENT
  Age: 48 Year
  Sex: Male

DRUGS (11)
  1. TYSABRI [Suspect]
     Indication: RELAPSING-REMITTING MULTIPLE SCLEROSIS
     Route: 042
     Dates: start: 20120521, end: 20121130
  2. GASTERIX [Concomitant]
     Indication: DYSPEPSIA
     Route: 048
     Dates: start: 20100126
  3. CALCICHEW D3 FORTE [Concomitant]
     Indication: MINERAL SUPPLEMENTATION
     Route: 048
     Dates: start: 20121126
  4. LOSARTAN MYLAN [Concomitant]
     Indication: HYPERTONIA
     Route: 048
     Dates: start: 20080331
  5. SIMVASTATIN [Concomitant]
     Indication: HYPERCHOLESTEROLAEMIA
     Route: 048
     Dates: start: 20110413
  6. SEROQUEL [Concomitant]
     Indication: BIPOLAR DISORDER
     Route: 048
     Dates: start: 20120614
  7. OPAMOX [Concomitant]
     Indication: ANXIETY
     Route: 048
     Dates: start: 20101109
  8. MIRTATSAPIN [Concomitant]
     Dates: start: 20130131
  9. GABAPENTIN [Concomitant]
     Indication: NEURALGIA
     Route: 048
     Dates: start: 20120313
  10. TRAMAL [Concomitant]
     Indication: PAIN
     Route: 048
     Dates: start: 20121126, end: 20121230
  11. TENOX [Concomitant]
     Route: 048
     Dates: start: 20120608

REACTIONS (2)
  - Necrotising retinitis [Not Recovered/Not Resolved]
  - Cytomegalovirus chorioretinitis [Unknown]
